FAERS Safety Report 4635865-1 (Version None)
Quarter: 2005Q2

REPORT INFORMATION
  Report Type: 
  Country: None (occurrence: None)
  Receive Date: 20050415
  Receipt Date: 20050405
  Transmission Date: 20051028
  Serious: Yes (Other)
  Sender: FDA-Public Use
  Company Number: BE-ABBOTT-05P-013-0296502-00

PATIENT
  Sex: Female

DRUGS (5)
  1. HUMIRA [Suspect]
     Indication: RHEUMATOID ARTHRITIS
     Route: 058
     Dates: start: 20040825, end: 20041222
  2. CYCLOSPORINE [Concomitant]
     Indication: RHEUMATOID ARTHRITIS
  3. CYCLOSPORINE [Concomitant]
  4. CYCLOSPORINE [Concomitant]
  5. METHYLPREDNISOLONE [Concomitant]
     Indication: RHEUMATOID ARTHRITIS

REACTIONS (1)
  - SEBORRHOEIC DERMATITIS [None]
